FAERS Safety Report 25328591 (Version 1)
Quarter: 2025Q2

REPORT INFORMATION
  Report Type: Spontaneous
  Country: CN (occurrence: CN)
  Receive Date: 20250519
  Receipt Date: 20250519
  Transmission Date: 20250717
  Serious: Yes (Other)
  Sender: MSN LABORATORIES PRIVATE LIMITED
  Company Number: CN-MSNLABS-2025MSNLIT01155

PATIENT

DRUGS (9)
  1. PACLITAXEL [Suspect]
     Active Substance: PACLITAXEL
     Indication: Lung squamous cell carcinoma stage II
     Dosage: 210 MG (DAY 1) EVERY 3 WEEKS
     Route: 065
     Dates: start: 20240831
  2. PACLITAXEL [Suspect]
     Active Substance: PACLITAXEL
     Dosage: 210 MG ,EVERY 3 WEEKS
     Route: 065
     Dates: start: 20240921
  3. PACLITAXEL [Suspect]
     Active Substance: PACLITAXEL
     Dosage: 210 MG ,EVERY 3 WEEKS
     Route: 065
     Dates: start: 20241013
  4. CARBOPLATIN [Suspect]
     Active Substance: CARBOPLATIN
     Indication: Lung squamous cell carcinoma stage II
     Dosage: 340 MG (DAY 1) EVERY 3 WEEKS
     Route: 065
     Dates: start: 20240831
  5. CARBOPLATIN [Suspect]
     Active Substance: CARBOPLATIN
     Dosage: 340 MG, EVERY 3 WEEKS
     Route: 065
     Dates: start: 20240921
  6. CARBOPLATIN [Suspect]
     Active Substance: CARBOPLATIN
     Dosage: 340 MG, EVERY 3 WEEKS
     Route: 065
     Dates: start: 20241013
  7. CAMRELIZUMAB [Suspect]
     Active Substance: CAMRELIZUMAB
     Indication: Lung squamous cell carcinoma stage II
     Dosage: 200 MG (DAY 1) EVERY 3 WEEKS
     Route: 042
     Dates: start: 20240831
  8. CAMRELIZUMAB [Suspect]
     Active Substance: CAMRELIZUMAB
     Dosage: 200 MG ,EVERY 3 WEEKS
     Route: 042
     Dates: start: 20240921
  9. CAMRELIZUMAB [Suspect]
     Active Substance: CAMRELIZUMAB
     Dosage: 200 MG, EVERY 3 WEEKS
     Route: 042
     Dates: start: 20241013

REACTIONS (1)
  - Subacute cutaneous lupus erythematosus [Recovering/Resolving]
